FAERS Safety Report 13232321 (Version 2)
Quarter: 2017Q1

REPORT INFORMATION
  Report Type: Spontaneous
  Country: DE (occurrence: DE)
  Receive Date: 20170214
  Receipt Date: 20170224
  Transmission Date: 20170428
  Serious: Yes (Hospitalization)
  Sender: FDA-Public Use
  Company Number: GXKR2017DE001009

PATIENT
  Age: 7 Year
  Sex: Male
  Weight: 25.5 kg

DRUGS (2)
  1. ELVANSE [Concomitant]
     Active Substance: LISDEXAMFETAMINE DIMESYLATE
     Indication: ATTENTION DEFICIT/HYPERACTIVITY DISORDER
     Dosage: 40 MG, QD
     Route: 048
     Dates: start: 201511
  2. RISPERIDON ? 1 A PHARMA [Suspect]
     Active Substance: RISPERIDONE
     Indication: ABNORMAL BEHAVIOUR
     Dosage: 0.5 MG, QHS
     Route: 048
     Dates: start: 201611

REACTIONS (6)
  - Tendonitis [Not Recovered/Not Resolved]
  - Joint stiffness [Recovering/Resolving]
  - Peripheral swelling [Recovering/Resolving]
  - Tendon pain [Not Recovered/Not Resolved]
  - Arthritis [Not Recovered/Not Resolved]
  - Arthralgia [Not Recovered/Not Resolved]

NARRATIVE: CASE EVENT DATE: 20161107
